FAERS Safety Report 7184666-1 (Version None)
Quarter: 2010Q4

REPORT INFORMATION
  Report Type: 
  Country: None (occurrence: None)
  Receive Date: 20101222
  Receipt Date: 20100524
  Transmission Date: 20110411
  Serious: No
  Sender: FDA-Public Use
  Company Number: US-AMGEN-KDL413977

PATIENT

DRUGS (12)
  1. ENBREL [Suspect]
     Indication: PRODUCT USED FOR UNKNOWN INDICATION
     Dosage: 50 MG, QWK
     Route: 058
  2. CENTRUM [Concomitant]
     Dosage: UNK UNK, UNK
  3. PREDNISONE [Concomitant]
     Dosage: 50 MG, UNK
  4. CALCIUM FOLINATE [Concomitant]
     Dosage: 5 MG, UNK
  5. LANSOPRAZOLE [Concomitant]
     Dosage: 15 MG, UNK
  6. PREGABALIN [Concomitant]
     Dosage: 50 MG, UNK
  7. CLONAZEPAM [Concomitant]
     Dosage: 1 MG, UNK
  8. ASCORBIC ACID [Concomitant]
     Dosage: 500 MG, UNK
  9. OXYCODONE [Concomitant]
     Dosage: 5 MG, UNK
  10. METHOTREXATE [Concomitant]
     Dosage: 50 MG, UNK
  11. ERGOCALCIFEROL [Concomitant]
     Dosage: 1000 IU, UNK
  12. CALCIUM WITH VITAMIN D [Concomitant]
     Dosage: UNK UNK, UNK

REACTIONS (5)
  - FOREIGN BODY IN EYE [None]
  - HYPOAESTHESIA [None]
  - MUSCULAR WEAKNESS [None]
  - PAIN IN EXTREMITY [None]
  - PAIN IN JAW [None]
